FAERS Safety Report 12795761 (Version 1)
Quarter: 2016Q3

REPORT INFORMATION
  Report Type: Spontaneous
  Country: US (occurrence: US)
  Receive Date: 20160929
  Receipt Date: 20160929
  Transmission Date: 20161109
  Serious: No
  Sender: FDA-Public Use
  Company Number: US-BAYER-2016-186528

PATIENT
  Age: 1 Year
  Sex: Female

DRUGS (4)
  1. CHILDREN CLARITIN ALLERGY [Suspect]
     Active Substance: LORATADINE
     Dosage: UNK
     Route: 048
     Dates: start: 20160922
  2. ZANTAC [Concomitant]
     Active Substance: RANITIDINE HYDROCHLORIDE
  3. NEXIUM [Concomitant]
     Active Substance: ESOMEPRAZOLE MAGNESIUM
  4. RESCON-GG [CHLORPHENAMINE MALEATE,PSEUDOEPHEDRINE HYDROCHLORIDE] [Concomitant]

REACTIONS (2)
  - Extra dose administered [None]
  - Expired product administered [None]

NARRATIVE: CASE EVENT DATE: 201609
